FAERS Safety Report 13610452 (Version 1)
Quarter: 2017Q2

REPORT INFORMATION
  Report Type: Spontaneous
  Country: JP (occurrence: JP)
  Receive Date: 20170605
  Receipt Date: 20170605
  Transmission Date: 20170830
  Serious: Yes (Hospitalization)
  Sender: FDA-Public Use
  Company Number: JP-GLAXOSMITHKLINE-JP2017JPN082241

PATIENT
  Age: 4 Decade
  Sex: Female

DRUGS (4)
  1. LAMICTAL [Suspect]
     Active Substance: LAMOTRIGINE
     Indication: BIPOLAR DISORDER
     Dosage: UNK
     Route: 048
  2. WYPAX [Concomitant]
     Active Substance: LORAZEPAM
     Dosage: UNK
  3. LONASEN [Concomitant]
     Active Substance: BLONANSERIN
     Dosage: UNK
  4. TOPINA [Concomitant]
     Active Substance: TOPIRAMATE
     Dosage: UNK

REACTIONS (1)
  - Overdose [Unknown]
